FAERS Safety Report 8451285-6 (Version None)
Quarter: 2012Q2

REPORT INFORMATION
  Report Type: 
  Country: None (occurrence: None)
  Receive Date: 20120620
  Receipt Date: 20120229
  Transmission Date: 20120825
  Serious: No
  Sender: FDA-Public Use
  Company Number: US-VERTEX PHARMACEUTICALS INC.-AE-2012-002324

PATIENT
  Sex: Male
  Weight: 81.72 kg

DRUGS (8)
  1. RIBAVIRIN [Concomitant]
     Indication: HEPATITIS C
     Route: 048
     Dates: start: 20111209, end: 20120217
  2. PEGASYS [Concomitant]
     Indication: HEPATITIS C
     Route: 058
     Dates: start: 20111209, end: 20120217
  3. XIFAXIN [Concomitant]
     Indication: AMMONIA DECREASED
     Route: 048
  4. LACTULOSE [Concomitant]
     Indication: AMMONIA DECREASED
     Route: 048
  5. COZAAR [Concomitant]
     Indication: HYPERTENSION
     Route: 048
  6. VITAMIN B-12 [Concomitant]
     Route: 048
  7. DILTIAZEM HYDROCHOLORIDE [Concomitant]
     Indication: HYPERTENSION
     Route: 048
  8. INCIVEK [Suspect]
     Indication: HEPATITIS C
     Route: 048
     Dates: start: 20111209, end: 20120217

REACTIONS (2)
  - DRUG INEFFECTIVE [None]
  - ANAL PRURITUS [None]
